FAERS Safety Report 11009685 (Version 3)
Quarter: 2015Q3

REPORT INFORMATION
  Report Type: Spontaneous
  Country: US (occurrence: US)
  Receive Date: 20150410
  Receipt Date: 20150722
  Transmission Date: 20151125
  Serious: Yes (Other)
  Sender: FDA-Public Use
  Company Number: US-BAYER-2015-118300

PATIENT
  Age: 40 Year
  Sex: Female
  Weight: 56.69 kg

DRUGS (2)
  1. MIRENA [Suspect]
     Active Substance: LEVONORGESTREL
     Indication: CONTRACEPTION
     Dosage: 20 MCG/24HR, CONT
     Route: 015
     Dates: start: 200209, end: 200806
  2. MIRENA [Suspect]
     Active Substance: LEVONORGESTREL
     Indication: CONTRACEPTION
     Dosage: 20 MCG/24HR, CONT
     Route: 015
     Dates: start: 20080610, end: 20131116

REACTIONS (12)
  - Abortion induced [None]
  - Injury [None]
  - Emotional distress [None]
  - Pregnancy with contraceptive device [None]
  - Pain [None]
  - Placenta praevia [None]
  - Abdominal pain [None]
  - Uterine perforation [None]
  - High risk pregnancy [None]
  - Drug ineffective [None]
  - Abdominal adhesions [None]
  - Device use error [None]

NARRATIVE: CASE EVENT DATE: 2013
